FAERS Safety Report 4418014-4 (Version None)
Quarter: 2004Q3

REPORT INFORMATION
  Report Type: 
  Country: None (occurrence: None)
  Receive Date: 20040803
  Receipt Date: 20040715
  Transmission Date: 20050211
  Serious: Yes (Hospitalization, Other)
  Sender: FDA-Public Use
  Company Number: 2004US002185

PATIENT
  Age: 56 Year
  Sex: Female
  Weight: 56.7 kg

DRUGS (16)
  1. ALOXI [Suspect]
     Indication: PROPHYLAXIS OF NAUSEA AND VOMITING
     Dosage: 0.25 MG MG, SINGLE, IV BOLUS
     Route: 040
     Dates: start: 20040630, end: 20040630
  2. ZOFRAN [Suspect]
     Indication: PROPHYLAXIS OF NAUSEA AND VOMITING
     Dosage: 20 MG, SINGLE, INTRAVENOUS
     Route: 042
     Dates: start: 20040701, end: 20040701
  3. SODIUM CHLORIDE [Concomitant]
  4. ADRIAMYCIN PFS [Concomitant]
  5. TAXOTERE [Concomitant]
  6. BENADRYL ^WARNER-LAMBERT^ (DIPHENYDRAMINE HYDROCHLORIDE ) [Concomitant]
  7. ZANTAC [Concomitant]
  8. DECADRON [Concomitant]
  9. NORVASC [Concomitant]
  10. DYAZIDE (TRIAMTERENE, HYDROCHLOROTHAZIDE) [Concomitant]
  11. ADVIL [Concomitant]
  12. ZYRTEC [Concomitant]
  13. CALCIUM (CALCIUM) [Concomitant]
  14. VITAMIN E [Concomitant]
  15. CENTRUM SILVER (ASCORBIC ACID, CALCIUM, MINERALS NOS, RETINOL, TOCOPHE [Concomitant]
  16. ASPIRIN [Concomitant]

REACTIONS (12)
  - ASTHENIA [None]
  - HAEMANGIOMA [None]
  - HYPOAESTHESIA [None]
  - MALFORMATION VENOUS [None]
  - MUSCLE TIGHTNESS [None]
  - MUSCULOSKELETAL DISCOMFORT [None]
  - NERVOUS SYSTEM DISORDER [None]
  - OEDEMA PERIPHERAL [None]
  - PARAESTHESIA ORAL [None]
  - PARALYSIS FLACCID [None]
  - PHOTOPSIA [None]
  - TRANSIENT ISCHAEMIC ATTACK [None]
